FAERS Safety Report 6250637-2 (Version None)
Quarter: 2009Q2

REPORT INFORMATION
  Report Type: 
  Country: None (occurrence: None)
  Receive Date: 20090626
  Receipt Date: 20090619
  Transmission Date: 20091009
  Serious: Yes (Other)
  Sender: FDA-Public Use
  Company Number: 2009SP013545

PATIENT
  Sex: Male

DRUGS (1)
  1. DESLORATADINE [Suspect]

REACTIONS (3)
  - NAUSEA [None]
  - VASCULITIS [None]
  - VOMITING [None]
